FAERS Safety Report 23813460 (Version 1)
Quarter: 2024Q2

REPORT INFORMATION
  Report Type: Other
  Country: JP (occurrence: JP)
  Receive Date: 20240503
  Receipt Date: 20240503
  Transmission Date: 20240716
  Serious: Yes (Hospitalization)
  Sender: FDA-Public Use
  Company Number: JP-CHUGAI-2024014305

PATIENT
  Age: 75 Year
  Sex: Female

DRUGS (7)
  1. ACTEMRA [Suspect]
     Active Substance: TOCILIZUMAB
     Indication: Still^s disease
     Dosage: 400 MILLIGRAM, ONCE/2WEEKS
     Route: 042
  2. PREDNISOLONE [Concomitant]
     Active Substance: PREDNISOLONE
     Indication: Still^s disease
     Dosage: 50 MILLIGRAM
  3. PREDNISOLONE [Concomitant]
     Active Substance: PREDNISOLONE
     Indication: Colitis ulcerative
  4. PREDNISOLONE [Concomitant]
     Active Substance: PREDNISOLONE
  5. PREDNISOLONE [Concomitant]
     Active Substance: PREDNISOLONE
  6. PREDNISOLONE [Concomitant]
     Active Substance: PREDNISOLONE
  7. CYCLOSPORINE [Concomitant]
     Active Substance: CYCLOSPORINE
     Indication: Still^s disease

REACTIONS (2)
  - Acute kidney injury [Unknown]
  - Colitis ulcerative [Unknown]
